FAERS Safety Report 5268239-3 (Version None)
Quarter: 2007Q1

REPORT INFORMATION
  Report Type: 
  Country: None (occurrence: None)
  Receive Date: 20070319
  Receipt Date: 20070228
  Transmission Date: 20070707
  Serious: Yes (Other)
  Sender: FDA-Public Use
  Company Number: 2006UW12032

PATIENT
  Sex: Female
  Weight: 56.8 kg

DRUGS (5)
  1. SEROQUEL [Suspect]
     Route: 048
  2. ZYPREXA [Suspect]
  3. CLOZARIL [Concomitant]
  4. RISPERDAL [Concomitant]
  5. OLANZAPINE [Concomitant]

REACTIONS (4)
  - DIABETES MELLITUS [None]
  - DIABETIC COMA [None]
  - INJURY [None]
  - PANCREATITIS [None]
